FAERS Safety Report 8413246-2 (Version None)
Quarter: 2012Q2

REPORT INFORMATION
  Report Type: 
  Country: None (occurrence: None)
  Receive Date: 20120605
  Receipt Date: 20120522
  Transmission Date: 20120825
  Serious: Yes (Other)
  Sender: FDA-Public Use
  Company Number: FR-ASTRAZENECA-2012SE36908

PATIENT
  Age: 0 Week

DRUGS (3)
  1. QUETIAPINE FUMARATE [Suspect]
     Route: 064
  2. QUETIAPINE FUMARATE [Suspect]
     Route: 064
  3. BENZODIAZEPINES [Suspect]
     Route: 064

REACTIONS (2)
  - HYPOTONIA NEONATAL [None]
  - DRUG WITHDRAWAL SYNDROME NEONATAL [None]
